FAERS Safety Report 6943557-9 (Version None)
Quarter: 2010Q3

REPORT INFORMATION
  Report Type: 
  Country: None (occurrence: None)
  Receive Date: 20100826
  Receipt Date: 20100818
  Transmission Date: 20110219
  Serious: Yes (Death, Hospitalization, Other)
  Sender: FDA-Public Use
  Company Number: US-ELI_LILLY_AND_COMPANY-US201007007830

PATIENT
  Sex: Male
  Weight: 75.828 kg

DRUGS (21)
  1. ALIMTA [Suspect]
     Indication: NON-SMALL CELL LUNG CANCER STAGE 0
     Dosage: 500 MG/M2, UNK
     Dates: start: 20100720
  2. AMIODARONE [Concomitant]
  3. ASPIRIN [Concomitant]
  4. DEXAMETHASONE [Concomitant]
  5. DILTIAZEM [Concomitant]
  6. HEPARIN [Concomitant]
  7. XOPENEX [Concomitant]
  8. SYNTHROID [Concomitant]
  9. LOPRESSOR [Concomitant]
  10. PRILOSEC [Concomitant]
  11. OMEPRAZOLE [Concomitant]
  12. HUMIBID [Concomitant]
  13. FORADIL [Concomitant]
  14. SPIRIVA [Concomitant]
  15. CIPRO [Concomitant]
  16. NEUTRA-PHOS [Concomitant]
  17. OXYGEN [Concomitant]
  18. PREDNISONE [Concomitant]
     Dosage: 10 MG, UNK
  19. DECADRON [Concomitant]
     Dosage: 4 MG, 2/D
  20. VITAMIN B-12 [Concomitant]
  21. FOLIC ACID [Concomitant]

REACTIONS (15)
  - ABDOMINAL DISTENSION [None]
  - BLOOD SODIUM DECREASED [None]
  - CHEST DISCOMFORT [None]
  - EPISTAXIS [None]
  - HYPOPHAGIA [None]
  - MALIGNANT NEOPLASM PROGRESSION [None]
  - NAUSEA [None]
  - NEUTROPENIA [None]
  - NON-SMALL CELL LUNG CANCER [None]
  - PNEUMONIA [None]
  - PO2 DECREASED [None]
  - RESPIRATORY DISTRESS [None]
  - RESPIRATORY FAILURE [None]
  - TACHYCARDIA [None]
  - WHITE BLOOD CELL COUNT DECREASED [None]
